FAERS Safety Report 13373046 (Version 1)
Quarter: 2017Q1

REPORT INFORMATION
  Report Type: Spontaneous
  Country: US (occurrence: US)
  Receive Date: 20170326
  Receipt Date: 20170326
  Transmission Date: 20170429
  Serious: Yes (Disabling, Other)
  Sender: FDA-Public Use
  Company Number: None

PATIENT
  Age: 65 Year
  Sex: Female

DRUGS (6)
  1. HYDRAZALINE 25 MG TWICE [Suspect]
     Active Substance: HYDRALAZINE HYDROCHLORIDE
     Indication: PERIPHERAL SWELLING
     Dosage: ?          QUANTITY:90 TABLET(S);?
     Route: 048
     Dates: start: 20170215
  2. TAURATE [Concomitant]
  3. MAGNESIUM [Concomitant]
     Active Substance: MAGNESIUM
  4. VITAMIN B12 [Concomitant]
     Active Substance: CYANOCOBALAMIN
  5. VITAMIN D [Concomitant]
     Active Substance: CHOLECALCIFEROL
  6. TYLENOL [Concomitant]
     Active Substance: ACETAMINOPHEN

REACTIONS (10)
  - Tremor [None]
  - Dizziness [None]
  - Chest discomfort [None]
  - Headache [None]
  - Chills [None]
  - Cough [None]
  - Decreased appetite [None]
  - Vision blurred [None]
  - Balance disorder [None]
  - Nausea [None]

NARRATIVE: CASE EVENT DATE: 20170325
